FAERS Safety Report 6020307-4 (Version None)
Quarter: 2008Q4

REPORT INFORMATION
  Report Type: 
  Country: None (occurrence: None)
  Receive Date: 20081226
  Receipt Date: 20081216
  Transmission Date: 20090506
  Serious: Yes (Hospitalization, Other)
  Sender: FDA-Public Use
  Company Number: PHHO2008FR13781

PATIENT
  Sex: Female
  Weight: 45 kg

DRUGS (6)
  1. ZOLEDRONIC ACID [Suspect]
     Indication: BONE SARCOMA
     Dosage: 2.25 MG, UNK
     Route: 042
     Dates: start: 20081110
  2. VEPESID [Suspect]
     Dosage: UNK
     Dates: start: 20081201, end: 20081204
  3. HOLOXAN [Suspect]
     Dosage: UNK
     Dates: start: 20081201, end: 20081204
  4. METHOTREXATE [Concomitant]
     Indication: BONE SARCOMA
     Dosage: 17.4 G, UNK
     Route: 042
     Dates: start: 20081106, end: 20081124
  5. CALCIUM [Concomitant]
  6. VITAMIN D [Concomitant]

REACTIONS (5)
  - BACTERIAL INFECTION [None]
  - FEBRILE BONE MARROW APLASIA [None]
  - HYPOCALCAEMIA [None]
  - KLEBSIELLA INFECTION [None]
  - SEPSIS [None]
